FAERS Safety Report 13120313 (Version 2)
Quarter: 2017Q1

REPORT INFORMATION
  Report Type: Spontaneous
  Country: JP (occurrence: JP)
  Receive Date: 20170117
  Receipt Date: 20170205
  Transmission Date: 20170428
  Serious: Yes (Death, Life-Threatening)
  Sender: FDA-Public Use
  Company Number: JP-BEH-2016076267

PATIENT
  Age: 70 Year
  Sex: Male

DRUGS (6)
  1. ALBUMINAR-25 [Suspect]
     Active Substance: ALBUMIN HUMAN
     Indication: PLEURAL EFFUSION
     Dosage: 12.5 G, TOT
     Route: 042
     Dates: start: 20161214, end: 20161214
  2. ALBUMINAR-25 [Suspect]
     Active Substance: ALBUMIN HUMAN
     Indication: HYPOALBUMINAEMIA
     Dosage: 12.5 G, TOT
     Route: 042
     Dates: start: 20161212, end: 20161212
  3. SODIUM VALPROATE [Concomitant]
     Active Substance: VALPROATE SODIUM
     Indication: EPILEPSY
     Dosage: 2.5 G, TID
     Route: 048
     Dates: start: 20121221, end: 20161215
  4. AMBROXOL [Concomitant]
     Active Substance: AMBROXOL
     Dosage: 3 DF, TID
     Route: 048
     Dates: start: 20160607, end: 20161215
  5. SENNOSIDE                          /00571901/ [Concomitant]
     Active Substance: SENNOSIDES A AND B
     Indication: CONSTIPATION
     Dosage: 2 DF, QD
     Route: 048
     Dates: start: 20160823, end: 20161215
  6. MAGNESIUM OXIDE. [Concomitant]
     Active Substance: MAGNESIUM OXIDE
     Indication: CONSTIPATION
     Dosage: 6 DF, TID
     Route: 048
     Dates: start: 20121221, end: 20161215

REACTIONS (3)
  - Facial spasm [Recovered/Resolved]
  - Facial spasm [Recovered/Resolved]
  - Pneumonia [Fatal]

NARRATIVE: CASE EVENT DATE: 20161212
